FAERS Safety Report 7610356-4 (Version None)
Quarter: 2011Q3

REPORT INFORMATION
  Report Type: 
  Country: None (occurrence: None)
  Receive Date: 20110715
  Receipt Date: 20101014
  Transmission Date: 20111222
  Serious: No
  Sender: FDA-Public Use
  Company Number: A0886570A

PATIENT
  Age: 31 Year
  Sex: Female

DRUGS (2)
  1. LOCOID LIPOCREAM [Suspect]
     Dates: start: 20100901, end: 20100914
  2. OLUX [Suspect]
     Dates: start: 20100901, end: 20100914

REACTIONS (1)
  - RASH [None]
